FAERS Safety Report 22096432 (Version 5)
Quarter: 2023Q2

REPORT INFORMATION
  Report Type: Spontaneous
  Country: US (occurrence: US)
  Receive Date: 20230315
  Receipt Date: 20230530
  Transmission Date: 20230721
  Serious: Yes (Other)
  Sender: FDA-Public Use
  Company Number: US-Vifor (International) Inc.-VIT-2023-01779

PATIENT
  Age: 42 Year
  Sex: Female

DRUGS (98)
  1. MIRCERA [Suspect]
     Active Substance: METHOXY POLYETHYLENE GLYCOL-EPOETIN BETA
     Indication: Anaemia
     Dosage: 2ND TX EVERY 2 WEEKS
     Dates: start: 20221102, end: 20230301
  2. MIRCERA [Suspect]
     Active Substance: METHOXY POLYETHYLENE GLYCOL-EPOETIN BETA
     Dosage: 2ND TX EVERY 2 WEEKS
     Dates: start: 20220922, end: 20221019
  3. MIRCERA [Suspect]
     Active Substance: METHOXY POLYETHYLENE GLYCOL-EPOETIN BETA
     Dosage: 2ND TX EVERY 2 WEEKS
     Dates: start: 20220615, end: 20220907
  4. MIRCERA [Suspect]
     Active Substance: METHOXY POLYETHYLENE GLYCOL-EPOETIN BETA
     Dosage: 2ND TX EVERY 2 WEEKS
     Dates: start: 20220504, end: 20220601
  5. MIRCERA [Suspect]
     Active Substance: METHOXY POLYETHYLENE GLYCOL-EPOETIN BETA
     Dosage: 50 MCG/ 0.3 ML SOLUTION, EACH WEDNESDAY EVERY 2 WEEKS
     Dates: start: 20181205, end: 20181214
  6. MIRCERA [Suspect]
     Active Substance: METHOXY POLYETHYLENE GLYCOL-EPOETIN BETA
     Dosage: 75 MCG/ 0.3 ML SOLUTION, EACH WEDNESDAY EVERY 4 WEEKS
     Dates: start: 20181215, end: 20190213
  7. MIRCERA [Suspect]
     Active Substance: METHOXY POLYETHYLENE GLYCOL-EPOETIN BETA
     Dosage: 75 MCG/ 0.3 ML SOLUTION, EACH WEDNESDAY EVERY 2 WEEKS
     Dates: start: 20190214, end: 20190227
  8. MIRCERA [Suspect]
     Active Substance: METHOXY POLYETHYLENE GLYCOL-EPOETIN BETA
     Dosage: 150 MCG/ 0.3 ML SOLUTION, EACH WEDNESDAY EVERY 2 WEEKS
     Dates: start: 20190228, end: 20190311
  9. MIRCERA [Suspect]
     Active Substance: METHOXY POLYETHYLENE GLYCOL-EPOETIN BETA
     Dosage: 200 MCG/ 0.3 ML SOLUTION, EACH WEDNESDAY EVERY 2 WEEKS
     Dates: start: 20190312, end: 20190405
  10. MIRCERA [Suspect]
     Active Substance: METHOXY POLYETHYLENE GLYCOL-EPOETIN BETA
     Dosage: 150 MCG/ 0.3 ML SOLUTION, EACH WEDNESDAY EVERY 2 WEEKS
     Dates: start: 20190406, end: 20190507
  11. MIRCERA [Suspect]
     Active Substance: METHOXY POLYETHYLENE GLYCOL-EPOETIN BETA
     Dosage: 75 MCG/ 0.3 ML SOLUTION, EACH WEDNESDAY EVERY 2 WEEKS
     Dates: start: 20190508, end: 20190611
  12. MIRCERA [Suspect]
     Active Substance: METHOXY POLYETHYLENE GLYCOL-EPOETIN BETA
     Dosage: 50 MCG/ 0.3 ML SOLUTION, EACH WEDNESDAY EVERY 2 WEEKS
     Dates: start: 20190612, end: 20190906
  13. MIRCERA [Suspect]
     Active Substance: METHOXY POLYETHYLENE GLYCOL-EPOETIN BETA
     Dosage: 200 MCG/ 0.3 ML SOLUTION, EACH WEDNESDAY EVERY 2 WEEKS
     Dates: start: 20190907, end: 20191115
  14. MIRCERA [Suspect]
     Active Substance: METHOXY POLYETHYLENE GLYCOL-EPOETIN BETA
     Dosage: 200 MCG/ 0.3 ML SOLUTION, ONCE
     Dates: start: 20191115, end: 20191115
  15. MIRCERA [Suspect]
     Active Substance: METHOXY POLYETHYLENE GLYCOL-EPOETIN BETA
     Dosage: 200 MCG/ 0.3 ML SOLUTION, ONCE, RESCHEDULED
     Dates: start: 20191126, end: 20191126
  16. MIRCERA [Suspect]
     Active Substance: METHOXY POLYETHYLENE GLYCOL-EPOETIN BETA
     Dosage: 200 MCG/ 0.3 ML SOLUTION, EACH WEDNESDAY EVERY 2 WEEKS
     Dates: start: 20191116, end: 20191209
  17. MIRCERA [Suspect]
     Active Substance: METHOXY POLYETHYLENE GLYCOL-EPOETIN BETA
     Dosage: 100 MCG/ 0.3 ML SOLUTION, ONCE, RESCHEDULED
     Dates: start: 20191231, end: 20191231
  18. MIRCERA [Suspect]
     Active Substance: METHOXY POLYETHYLENE GLYCOL-EPOETIN BETA
     Dosage: 100 MCG/ 0.3 ML SOLUTION, EACH WEDNESDAY EVERY 2 WEEKS
     Dates: start: 20191210, end: 20200310
  19. MIRCERA [Suspect]
     Active Substance: METHOXY POLYETHYLENE GLYCOL-EPOETIN BETA
     Dosage: 150 MCG/ 0.3 ML SOLUTION, EACH WEDNESDAY EVERY 2 WEEKS
     Dates: start: 20200311, end: 20200330
  20. MIRCERA [Suspect]
     Active Substance: METHOXY POLYETHYLENE GLYCOL-EPOETIN BETA
     Dosage: 200 MCG/ 0.3 ML SOLUTION, EACH WEDNESDAY EVERY 2 WEEKS
     Dates: start: 20200331, end: 20200511
  21. MIRCERA [Suspect]
     Active Substance: METHOXY POLYETHYLENE GLYCOL-EPOETIN BETA
     Dosage: 200 MCG/ 0.3 ML SOLUTION,ONCE
     Dates: start: 20200725, end: 20200725
  22. MIRCERA [Suspect]
     Active Substance: METHOXY POLYETHYLENE GLYCOL-EPOETIN BETA
     Dosage: 200 MCG/ 0.3 ML SOLUTION, EACH WEDNESDAY EVERY 2 WEEKS
     Dates: start: 20200512, end: 20201109
  23. MIRCERA [Suspect]
     Active Substance: METHOXY POLYETHYLENE GLYCOL-EPOETIN BETA
     Dosage: 150 MCG/ 0.3 ML SOLUTION, ONCE RESCHEDULED
     Dates: start: 20201124, end: 20201124
  24. MIRCERA [Suspect]
     Active Substance: METHOXY POLYETHYLENE GLYCOL-EPOETIN BETA
     Dosage: 150 MCG/ 0.3 ML SOLUTION, EACH WEDNESDAY EVERY 2 WEEKS
     Dates: start: 20201110, end: 20210810
  25. MIRCERA [Suspect]
     Active Substance: METHOXY POLYETHYLENE GLYCOL-EPOETIN BETA
     Dosage: 100 MCG/ 0.3 ML SOLUTION, EACH WEDNESDAY EVERY 2 WEEKS
     Dates: start: 20210911, end: 20211011
  26. MIRCERA [Suspect]
     Active Substance: METHOXY POLYETHYLENE GLYCOL-EPOETIN BETA
     Dosage: 150 MCG/ 0.3 ML SOLUTION, ONCE RESCHEDULED
     Dates: start: 20211123, end: 20211123
  27. MIRCERA [Suspect]
     Active Substance: METHOXY POLYETHYLENE GLYCOL-EPOETIN BETA
     Dosage: 150 MCG/ 0.3 ML SOLUTION, EACH WEDNESDAY EVERY 2 WEEKS
     Dates: start: 20211012, end: 20220307
  28. MIRCERA [Suspect]
     Active Substance: METHOXY POLYETHYLENE GLYCOL-EPOETIN BETA
     Dosage: 150 MCG/ 0.3 ML SOLUTION, EACH WEDNESDAY EVERY 2 WEEKS
     Dates: start: 20210308
  29. VENOFER [Suspect]
     Active Substance: IRON SUCROSE
     Indication: Product used for unknown indication
     Dosage: 20MG/ML SOLUTION,3 TIMES A WEEK X 4 DOSES (4 GIVEN OF 4)
     Route: 042
     Dates: start: 20180615, end: 20180622
  30. VENOFER [Suspect]
     Active Substance: IRON SUCROSE
     Dosage: 20MG/ML SOLUTION, EACH WEDNESDAY EVERY 2 WEEKS
     Route: 042
     Dates: start: 20180627, end: 20180725
  31. VENOFER [Suspect]
     Active Substance: IRON SUCROSE
     Dosage: 20MG/ML SOLUTION,3 TIMES A WEEK X 4 DOSES (4 GIVEN OF 4)
     Route: 042
     Dates: start: 20180815, end: 20180822
  32. VENOFER [Suspect]
     Active Substance: IRON SUCROSE
     Dosage: 20MG/ML SOLUTION, EACH WEDNESDAY EVERY 2 WEEKS
     Route: 042
     Dates: start: 20180829, end: 20180911
  33. VENOFER [Suspect]
     Active Substance: IRON SUCROSE
     Dosage: 20MG/ML SOLUTION,3 TIMES A WEEK X 4 DOSES (4 GIVEN OF 4)
     Route: 042
     Dates: start: 20180914, end: 20180921
  34. VENOFER [Suspect]
     Active Substance: IRON SUCROSE
     Dosage: 20MG/ML SOLUTION, EACH WEDNESDAY EVERY 2 WEEKS
     Route: 042
     Dates: start: 20180911, end: 20181115
  35. VENOFER [Suspect]
     Active Substance: IRON SUCROSE
     Dosage: 20MG/ML SOLUTION, ONCE RESCHEDULED
     Route: 042
     Dates: start: 20181120, end: 20181120
  36. VENOFER [Suspect]
     Active Substance: IRON SUCROSE
     Dosage: 20MG/ML SOLUTION,3 TIMES A WEEK X 4 DOSES (4 GIVEN OF 4)
     Route: 042
     Dates: start: 20190312, end: 20190320
  37. VENOFER [Suspect]
     Active Substance: IRON SUCROSE
     Dosage: 20MG/ML SOLUTION, EACH WEDNESDAY EVERY 2 WEEKS
     Route: 042
     Dates: start: 20190327, end: 20190412
  38. VENOFER [Suspect]
     Active Substance: IRON SUCROSE
     Dosage: 20MG/ML SOLUTION,3 TIMES A WEEK X 4 DOSES (4 GIVEN OF 4)
     Route: 042
     Dates: start: 20190517, end: 20190524
  39. VENOFER [Suspect]
     Active Substance: IRON SUCROSE
     Dosage: 20MG/ML SOLUTION, EACH WEDNESDAY EVERY 2 WEEKS
     Route: 042
     Dates: start: 20190605, end: 20190715
  40. VENOFER [Suspect]
     Active Substance: IRON SUCROSE
     Dosage: 20MG/ML SOLUTION,3 TIMES A WEEK X 4 DOSES (4 GIVEN OF 4)
     Route: 042
     Dates: start: 20190913, end: 20190923
  41. VENOFER [Suspect]
     Active Substance: IRON SUCROSE
     Dosage: 20MG/ML SOLUTION, EACH WEDNESDAY EVERY 2 WEEKS
     Route: 042
     Dates: start: 20191002, end: 20191015
  42. VENOFER [Suspect]
     Active Substance: IRON SUCROSE
     Dosage: 20MG/ML SOLUTION,3 TIMES A WEEK X 4 DOSES (4 GIVEN OF 4)
     Route: 042
     Dates: start: 20191015, end: 20191023
  43. VENOFER [Suspect]
     Active Substance: IRON SUCROSE
     Dosage: 20MG/ML SOLUTION, EACH WEDNESDAY EVERY 2 WEEKS
     Route: 042
     Dates: start: 20191106, end: 20191119
  44. VENOFER [Suspect]
     Active Substance: IRON SUCROSE
     Dosage: 20MG/ML SOLUTION,3 TIMES A WEEK X 4 DOSES (4 GIVEN OF 4)
     Route: 042
     Dates: start: 20191119, end: 20191126
  45. VENOFER [Suspect]
     Active Substance: IRON SUCROSE
     Dosage: 20MG/ML SOLUTION, ONCE RESCHEDULED
     Route: 042
     Dates: start: 20191231, end: 20191231
  46. VENOFER [Suspect]
     Active Substance: IRON SUCROSE
     Dosage: 20MG/ML SOLUTION, EACH WEDNESDAY EVERY 2 WEEKS
     Route: 042
     Dates: start: 20191218, end: 20200102
  47. VENOFER [Suspect]
     Active Substance: IRON SUCROSE
     Dosage: 20MG/ML SOLUTION,3 TIMES A WEEK X 4 DOSES (4 GIVEN OF 4)
     Route: 042
     Dates: start: 20200102, end: 20200108
  48. VENOFER [Suspect]
     Active Substance: IRON SUCROSE
     Dosage: 20MG/ML SOLUTION, EACH WEDNESDAY EVERY 2 WEEKS
     Route: 042
     Dates: start: 20200116, end: 20200122
  49. VENOFER [Suspect]
     Active Substance: IRON SUCROSE
     Dosage: 20MG/ML SOLUTION,3 TIMES A WEEK X 4 DOSES (4 GIVEN OF 4)
     Route: 042
     Dates: start: 20200226, end: 20200304
  50. VENOFER [Suspect]
     Active Substance: IRON SUCROSE
     Dosage: 20MG/ML SOLUTION, EACH WEDNESDAY EVERY 2 WEEKS
     Route: 042
     Dates: start: 20200318, end: 20200414
  51. VENOFER [Suspect]
     Active Substance: IRON SUCROSE
     Dosage: 20MG/ML SOLUTION,3 TIMES A WEEK X 4 DOSES (4 GIVEN OF 4)
     Route: 042
     Dates: start: 20200414, end: 20200424
  52. VENOFER [Suspect]
     Active Substance: IRON SUCROSE
     Dosage: 20MG/ML SOLUTION, EACH WEDNESDAY EVERY 2 WEEKS
     Route: 042
     Dates: start: 20200506, end: 20200519
  53. VENOFER [Suspect]
     Active Substance: IRON SUCROSE
     Dosage: 20MG/ML SOLUTION,3 TIMES A WEEK X 7 DOSES (7 GIVEN OF 7)
     Route: 042
     Dates: start: 20200519, end: 20200608
  54. VENOFER [Suspect]
     Active Substance: IRON SUCROSE
     Dosage: 20MG/ML SOLUTION, EACH WEDNESDAY EVERY 2 WEEKS
     Route: 042
     Dates: start: 20200624, end: 20200625
  55. VENOFER [Suspect]
     Active Substance: IRON SUCROSE
     Dosage: 20MG/ML SOLUTION,3 TIMES A WEEK X 7 DOSES (7 GIVEN OF 7)
     Route: 042
     Dates: start: 20200625, end: 20200713
  56. VENOFER [Suspect]
     Active Substance: IRON SUCROSE
     Dosage: 20MG/ML SOLUTION, EACH WEDNESDAY EVERY 2 WEEKS
     Route: 042
     Dates: start: 20200722, end: 20200825
  57. VENOFER [Suspect]
     Active Substance: IRON SUCROSE
     Dosage: 20MG/ML SOLUTION,3 TIMES A WEEK X 7 DOSES (7 GIVEN OF 7)
     Route: 042
     Dates: start: 20200825, end: 20200909
  58. VENOFER [Suspect]
     Active Substance: IRON SUCROSE
     Dosage: 20MG/ML SOLUTION, EACH WEDNESDAY EVERY 2 WEEKS
     Route: 042
     Dates: start: 20200825, end: 20200925
  59. VENOFER [Suspect]
     Active Substance: IRON SUCROSE
     Dosage: 20MG/ML SOLUTION,3 TIMES A WEEK X 4 DOSES (4 GIVEN OF 4)
     Route: 042
     Dates: start: 20200928, end: 20201005
  60. VENOFER [Suspect]
     Active Substance: IRON SUCROSE
     Dosage: 20MG/ML SOLUTION, ONCE RESCHEDULED
     Route: 042
     Dates: start: 20201124, end: 20201124
  61. VENOFER [Suspect]
     Active Substance: IRON SUCROSE
     Dosage: 20MG/ML SOLUTION, EACH WEDNESDAY EVERY 2 WEEKS
     Route: 042
     Dates: start: 20200925, end: 20201215
  62. VENOFER [Suspect]
     Active Substance: IRON SUCROSE
     Dosage: 20MG/ML SOLUTION,3 TIMES A WEEK X 4 DOSES (4 GIVEN OF 4)
     Route: 042
     Dates: start: 20201215, end: 20201223
  63. VENOFER [Suspect]
     Active Substance: IRON SUCROSE
     Dosage: 20MG/ML SOLUTION, EACH WEDNESDAY EVERY 2 WEEKS
     Route: 042
     Dates: start: 20201215, end: 20210318
  64. VENOFER [Suspect]
     Active Substance: IRON SUCROSE
     Dosage: 20MG/ML SOLUTION,3 TIMES A WEEK X 4 DOSES (4 GIVEN OF 4)
     Route: 042
     Dates: start: 20210322, end: 20210329
  65. VENOFER [Suspect]
     Active Substance: IRON SUCROSE
     Dosage: 20MG/ML SOLUTION, EACH WEDNESDAY EVERY 2 WEEKS
     Route: 042
     Dates: start: 20210318, end: 20210517
  66. VENOFER [Suspect]
     Active Substance: IRON SUCROSE
     Dosage: 20MG/ML SOLUTION,3 TIMES A WEEK X 4 DOSES (4 GIVEN OF 4)
     Route: 042
     Dates: start: 20210518, end: 20210526
  67. VENOFER [Suspect]
     Active Substance: IRON SUCROSE
     Dosage: 20MG/ML SOLUTION, EACH WEDNESDAY EVERY 2 WEEKS
     Route: 042
     Dates: start: 20210517, end: 20210913
  68. VENOFER [Suspect]
     Active Substance: IRON SUCROSE
     Dosage: 20MG/ML SOLUTION,3 TIMES A WEEK X 7 DOSES (7 GIVEN OF 7)
     Route: 042
     Dates: start: 20211118, end: 20211206
  69. VENOFER [Suspect]
     Active Substance: IRON SUCROSE
     Dosage: 20MG/ML SOLUTION,3 TIMES A WEEK X 4 DOSES (4 GIVEN OF 4)
     Route: 042
     Dates: start: 20211214, end: 20211222
  70. VENOFER [Suspect]
     Active Substance: IRON SUCROSE
     Dosage: 20MG/ML SOLUTION, EACH WEDNESDAY EVERY 2 WEEKS
     Route: 042
     Dates: start: 20211214, end: 20220214
  71. HUMAN IMMUNOGLOBULIN G [Concomitant]
     Active Substance: HUMAN IMMUNOGLOBULIN G
     Indication: Parvovirus infection
  72. UNSPECIFIED INGREDIENT [Concomitant]
     Active Substance: UNSPECIFIED INGREDIENT
     Indication: Hypertension
     Dates: start: 20190819, end: 202004
  73. HEPARIN [Concomitant]
     Active Substance: HEPARIN SODIUM
     Dosage: 1000 UNITS/ML SOLUTION, 3 TO 4 TIMES A WEEK PRE DIALYSIS
     Dates: start: 20210609
  74. ARANESP [Concomitant]
     Active Substance: DARBEPOETIN ALFA
     Dosage: 10-40 MCG
     Dates: start: 20161019, end: 20220308
  75. ZEMPLAR [Concomitant]
     Active Substance: PARICALCITOL
     Dosage: 5MCG/ML SOLUTION, THREE TIME A WEEK
     Dates: start: 20150325, end: 20150407
  76. ZEMPLAR [Concomitant]
     Active Substance: PARICALCITOL
     Dosage: 5MCG/ML SOLUTION, THREE TIMES A WEEK
     Dates: start: 20190927, end: 20191029
  77. ZEMPLAR [Concomitant]
     Active Substance: PARICALCITOL
     Dosage: 5MCG/ML SOLUTION, THREE TIME A WEEK
     Dates: start: 20150407, end: 20150514
  78. ZEMPLAR [Concomitant]
     Active Substance: PARICALCITOL
     Dosage: 5MCG/ML SOLUTION, THREE TIME A WEEK
     Dates: start: 20150514, end: 20150913
  79. ZEMPLAR [Concomitant]
     Active Substance: PARICALCITOL
     Dosage: 5MCG/ML SOLUTION, THREE TIME A WEEK
     Dates: start: 20150913, end: 20161107
  80. ZEMPLAR [Concomitant]
     Active Substance: PARICALCITOL
     Dosage: 5MCG/ML SOLUTION, THREE TIME A WEEK
     Dates: start: 20170118, end: 20181009
  81. ZEMPLAR [Concomitant]
     Active Substance: PARICALCITOL
     Dosage: 5MCG/ML SOLUTION, THREE TIME A WEEK
     Dates: start: 20181109, end: 20190927
  82. ZEMPLAR [Concomitant]
     Active Substance: PARICALCITOL
     Dosage: 5MCG/ML SOLUTION, THREE TIME A WEEK
     Dates: start: 20190927, end: 20191029
  83. CARVEDILOL [Concomitant]
     Active Substance: CARVEDILOL
     Route: 048
     Dates: start: 20190211
  84. HYDRALAZINE [Concomitant]
     Active Substance: HYDRALAZINE HYDROCHLORIDE
     Route: 048
     Dates: start: 20210129
  85. ISOSORBIDE DINITRATE [Concomitant]
     Active Substance: ISOSORBIDE DINITRATE
     Route: 048
     Dates: start: 20210129
  86. LASIX [Concomitant]
     Active Substance: FUROSEMIDE
     Route: 048
     Dates: start: 20190426
  87. LISINOPRIL [Concomitant]
     Active Substance: LISINOPRIL
     Route: 048
     Dates: start: 20190211
  88. PROBIOTIC FORMULA [Concomitant]
     Route: 048
     Dates: start: 20200131
  89. LIQUACEL [Concomitant]
     Dosage: 3 TO 4 TIMES A WEEK
     Route: 048
     Dates: start: 20200210, end: 20200211
  90. VANCOMYCIN [Concomitant]
     Active Substance: VANCOMYCIN
     Dosage: 1GM/200ML NACL 0.9 % SOLUTION, EACH MONDAY, WEDNESDAY AND FRIDAY
     Dates: start: 20210906, end: 20210906
  91. VANCOMYCIN [Concomitant]
     Active Substance: VANCOMYCIN
     Dosage: 1GM/200ML NACL 0.9 % SOLUTION, EACH MONDAY, WEDNESDAY AND FRIDAY X 18 DOSES (2 GIVEN OF 18)
     Dates: start: 20210910, end: 20210910
  92. VANCOMYCIN [Concomitant]
     Active Substance: VANCOMYCIN
     Dosage: 1GM/200ML NACL 0.9 % SOLUTION, EACH MONDAY, WEDNESDAY AND FRIDAY X 18 DOSES (7 GIVEN OF 18)
     Dates: start: 202109, end: 20210922
  93. VANCOMYCIN [Concomitant]
     Active Substance: VANCOMYCIN
     Dosage: 1GM/200ML NACL 0.9 % SOLUTION, EACH MONDAY, WEDNESDAY AND FRIDAY X 18 DOSES (10 GIVEN OF 18)
     Dates: start: 20210922, end: 20210930
  94. VANCOMYCIN [Concomitant]
     Active Substance: VANCOMYCIN
     Dosage: 1GM SOLUTION
     Dates: start: 20210930, end: 20210930
  95. VANCOMYCIN [Concomitant]
     Active Substance: VANCOMYCIN
     Dosage: 500 MG POWDER FOR INJECTION, 3-4 TIMES A WEEK X 18 DOSES (18 GIVEN OF 18)
     Dates: start: 20210930, end: 20211018
  96. ATENOLOL [Concomitant]
     Active Substance: ATENOLOL
     Dosage: ONCE (AT BEDTIME)
     Route: 048
     Dates: start: 20150501, end: 20190426
  97. WARFARIN [Concomitant]
     Active Substance: WARFARIN
     Dosage: ONCE A DAY 1 1/2 TABLET
     Route: 048
     Dates: start: 20150501, end: 20190426
  98. RENAL CAPS [Concomitant]
     Route: 048
     Dates: start: 20150501, end: 20190426

REACTIONS (3)
  - Haemoglobin decreased [Unknown]
  - Parvovirus B19 infection [Unknown]
  - Vitamin B12 deficiency [Unknown]

NARRATIVE: CASE EVENT DATE: 20221101
